FAERS Safety Report 6021906-6 (Version None)
Quarter: 2008Q4

REPORT INFORMATION
  Report Type: 
  Country: None (occurrence: None)
  Receive Date: 20081229
  Receipt Date: 20081222
  Transmission Date: 20090506
  Serious: Yes (Hospitalization)
  Sender: FDA-Public Use
  Company Number: US-ASTRAZENECA-2008UW28557

PATIENT
  Sex: Female

DRUGS (2)
  1. NEXIUM [Suspect]
     Route: 048
  2. PREDNISONE [Concomitant]

REACTIONS (4)
  - ABDOMINAL PAIN UPPER [None]
  - INFECTION [None]
  - PULMONARY SARCOIDOSIS [None]
  - WHITE BLOOD CELL COUNT INCREASED [None]
